FAERS Safety Report 4373555-3 (Version None)
Quarter: 2004Q1

REPORT INFORMATION
  Report Type: 
  Country: None (occurrence: None)
  Receive Date: 20040305
  Receipt Date: 20040127
  Transmission Date: 20041129
  Serious: Yes (Other)
  Sender: FDA-Public Use
  Company Number: 2004UW01529

PATIENT
  Sex: Male

DRUGS (2)
  1. CRESTOR [Suspect]
     Dosage: 1 MG PO
     Route: 048
  2. LIPITOR [Concomitant]

REACTIONS (2)
  - CHROMATURIA [None]
  - MYALGIA [None]
